FAERS Safety Report 9495947 (Version 2)
Quarter: 2013Q4

REPORT INFORMATION
  Report Type: Spontaneous
  Country: FR (occurrence: FR)
  Receive Date: 20130904
  Receipt Date: 20131015
  Transmission Date: 20140711
  Serious: Yes (Other)
  Sender: FDA-Public Use
  Company Number: FR-ROCHE-1269868

PATIENT
  Age: 65 Year
  Sex: Female
  Weight: 73 kg

DRUGS (5)
  1. AVASTIN [Suspect]
     Indication: COLORECTAL CANCER METASTATIC
     Route: 042
     Dates: start: 20120919, end: 20130805
  2. IRINOTECAN [Concomitant]
     Indication: COLORECTAL CANCER METASTATIC
     Route: 042
     Dates: start: 20120919
  3. 5-FU [Concomitant]
     Route: 041
     Dates: start: 20120919
  4. 5-FU [Concomitant]
     Route: 040
     Dates: start: 20120919
  5. LOVENOX [Concomitant]
     Indication: VENOUS THROMBOSIS
     Route: 058
     Dates: start: 20121003

REACTIONS (1)
  - Vitreous detachment [Recovering/Resolving]
